FAERS Safety Report 9101306 (Version 2)
Quarter: 2018Q1

REPORT INFORMATION
  Report Type: Spontaneous
  Country: JP (occurrence: JP)
  Receive Date: 20130215
  Receipt Date: 20180301
  Transmission Date: 20180509
  Serious: Yes (Life-Threatening, Other)
  Sender: FDA-Public Use
  Company Number: JP-SANOFI-AVENTIS-2013SA011896

PATIENT
  Age: 73 Year
  Sex: Male

DRUGS (2)
  1. LEVOFOLINATE [Suspect]
     Active Substance: LEVOLEUCOVORIN CALCIUM
     Route: 041
     Dates: end: 20130220
  2. ELPLAT [Suspect]
     Active Substance: OXALIPLATIN
     Indication: PRODUCT USED FOR UNKNOWN INDICATION
     Route: 041
     Dates: end: 20130220

REACTIONS (3)
  - Rhabdomyolysis [Unknown]
  - Diarrhoea [Unknown]
  - Hypersensitivity [Unknown]
